FAERS Safety Report 15221520 (Version 1)
Quarter: 2018Q3

REPORT INFORMATION
  Report Type: Spontaneous
  Country: US (occurrence: US)
  Receive Date: 20180731
  Receipt Date: 20180731
  Transmission Date: 20181010
  Serious: No
  Sender: FDA-Public Use
  Company Number: US-PFIZER INC-2018307253

PATIENT
  Age: 46 Year
  Sex: Female
  Weight: 47.17 kg

DRUGS (2)
  1. DOCETAXEL. [Suspect]
     Active Substance: DOCETAXEL
     Indication: BREAST CANCER FEMALE
     Dosage: UNK, EVERY 3 WEEKS (06 CYCLES)
     Dates: start: 20091216, end: 201003
  2. NEOSAR [Concomitant]
     Active Substance: CYCLOPHOSPHAMIDE
     Dosage: UNK

REACTIONS (5)
  - Alopecia [Unknown]
  - Hair texture abnormal [Unknown]
  - Madarosis [Unknown]
  - Hair colour changes [Unknown]
  - Hair disorder [Unknown]
